FAERS Safety Report 16945573 (Version 1)
Quarter: 2019Q4

REPORT INFORMATION
  Report Type: Spontaneous
  Country: US (occurrence: US)
  Receive Date: 20191021
  Receipt Date: 20191021
  Transmission Date: 20200122
  Serious: Yes (Hospitalization, Other)
  Sender: FDA-Public Use
  Company Number: None

PATIENT
  Age: 81 Year
  Sex: Female

DRUGS (9)
  1. REPATHA [Suspect]
     Active Substance: EVOLOCUMAB
     Indication: HYPERLIPIDAEMIA
     Dosage: ?          OTHER FREQUENCY:EVERY 2 WEEKS;?
     Route: 058
     Dates: start: 20180113
  2. ESZOPICLONE. [Concomitant]
     Active Substance: ESZOPICLONE
  3. NITROFURANTIN [Concomitant]
     Active Substance: NITROFURANTOIN
  4. FLUTICASONE. [Concomitant]
     Active Substance: FLUTICASONE
  5. CELECOXIB. [Concomitant]
     Active Substance: CELECOXIB
  6. PHENAZOPYRID [Concomitant]
  7. PANTOPRAZOLE [Concomitant]
     Active Substance: PANTOPRAZOLE
  8. ONDANSETRON [Concomitant]
     Active Substance: ONDANSETRON
  9. LUNESTA [Concomitant]
     Active Substance: ESZOPICLONE

REACTIONS (3)
  - Dehydration [None]
  - Therapy cessation [None]
  - Myalgia [None]
